FAERS Safety Report 8932867 (Version 2)
Quarter: 2013Q1

REPORT INFORMATION
  Report Type: Spontaneous
  Country: US (occurrence: US)
  Receive Date: 20121129
  Receipt Date: 20130306
  Transmission Date: 20140127
  Serious: Yes (Hospitalization)
  Sender: FDA-Public Use
  Company Number: US-BAYER-2012-124552

PATIENT
  Age: 41 Year
  Sex: Female
  Weight: 65.76 kg

DRUGS (4)
  1. YAZ [Suspect]
     Indication: CONTRACEPTION
     Dosage: UNK
     Dates: start: 200806, end: 20120628
  2. YASMIN [Suspect]
     Dosage: UNK
     Dates: start: 200806, end: 20120628
  3. BEYAZ [Suspect]
     Indication: CONTRACEPTION
     Dosage: UNK
     Dates: start: 200806, end: 20120628
  4. STRATTERA [Concomitant]
     Indication: ATTENTION DEFICIT/HYPERACTIVITY DISORDER

REACTIONS (9)
  - Cerebrovascular accident [None]
  - Injury [None]
  - Pain [None]
  - Emotional distress [None]
  - Anxiety [None]
  - General physical health deterioration [None]
  - Speech disorder [None]
  - Dysgraphia [None]
  - Reading disorder [None]
